FAERS Safety Report 7054204-2 (Version None)
Quarter: 2010Q4

REPORT INFORMATION
  Report Type: 
  Country: None (occurrence: None)
  Receive Date: 20101015
  Receipt Date: 20101005
  Transmission Date: 20110411
  Serious: Yes (Hospitalization)
  Sender: FDA-Public Use
  Company Number: 1000016703

PATIENT
  Age: 82 Year
  Sex: Female

DRUGS (5)
  1. NEBIVOLOL HCL [Suspect]
     Indication: HYPERTENSION
     Dosage: 5 MG (5 MG, 1 IN 1 D), ORAL
     Route: 048
  2. IPERTEN (MANIDIPINE HYDROCHLORIDE) [Suspect]
     Indication: HYPERTENSION
     Dosage: 10 MG (10 MG, 1 IN 1 D), ORAL
     Route: 048
  3. PRITORPLUS (TELMISARTAN, HYDROCHLOROTHIAZIDE) [Suspect]
     Indication: HYPERTENSION
     Dosage: 80/25 (1 IN 1 D), ORAL
     Route: 048
  4. KARDEGIC (ACETYLSALICYLATE LYSINE) [Suspect]
     Dosage: 75 MG (75 MG, 1 IN 1 D), ORAL
     Route: 048
  5. LEVOTHYROXINE SODIUM [Suspect]
     Indication: HYPOTHYROIDISM
     Dosage: 50 MG (50 MG, 1 IN 1 D), ORAL
     Route: 048

REACTIONS (3)
  - BALANCE DISORDER [None]
  - HYPOKALAEMIA [None]
  - HYPONATRAEMIA [None]
